FAERS Safety Report 6814299-5 (Version None)
Quarter: 2010Q3

REPORT INFORMATION
  Report Type: 
  Country: None (occurrence: None)
  Receive Date: 20100702
  Receipt Date: 20100701
  Transmission Date: 20110219
  Serious: Yes (Other)
  Sender: FDA-Public Use
  Company Number: US-JNJFOC-20091102063

PATIENT
  Sex: Male

DRUGS (3)
  1. LEVAQUIN [Suspect]
     Indication: SINUSITIS
     Route: 048
  2. LEVAQUIN [Suspect]
     Indication: BACTERIAL INFECTION
     Route: 048
  3. STEROIDS NOS [Suspect]
     Indication: SINUSITIS
     Route: 065

REACTIONS (2)
  - POST-TRAUMATIC STRESS DISORDER [None]
  - ROTATOR CUFF SYNDROME [None]
